FAERS Safety Report 8590688-6 (Version None)
Quarter: 2012Q3

REPORT INFORMATION
  Report Type: 
  Country: None (occurrence: None)
  Receive Date: 20120813
  Receipt Date: 20120808
  Transmission Date: 20120928
  Serious: No
  Sender: FDA-Public Use
  Company Number: US-PFIZER INC-2012193760

PATIENT
  Age: 81 Year
  Sex: Female
  Weight: 77.098 kg

DRUGS (7)
  1. ATENOLOL [Concomitant]
     Dosage: 50 MG, 1X/DAY
  2. ASPIRIN [Concomitant]
     Dosage: 81 MG, 1X/DAY
  3. ROPINIROLE [Concomitant]
     Dosage: 1 MG, 1X/DAY
  4. PANTOPRAZOLE [Concomitant]
     Dosage: 40 MG, 1X/DAY
  5. LYRICA [Suspect]
     Indication: CARPAL TUNNEL SYNDROME
     Dosage: UNK, 3X/DAY
     Route: 048
     Dates: start: 20120101, end: 20120101
  6. LYRICA [Suspect]
     Dosage: UNK, 2X/DAY
     Route: 048
     Dates: start: 20120101
  7. ENABLEX [Concomitant]
     Dosage: 50 MG, 1X/DAY

REACTIONS (3)
  - HYPOAESTHESIA [None]
  - DRUG ADMINISTRATION ERROR [None]
  - PARAESTHESIA [None]
